FAERS Safety Report 18377738 (Version 1)
Quarter: 2020Q4

REPORT INFORMATION
  Report Type: Spontaneous
  Country: DE (occurrence: DE)
  Receive Date: 20201013
  Receipt Date: 20201013
  Transmission Date: 20210114
  Serious: Yes (Hospitalization, Other)
  Sender: FDA-Public Use
  Company Number: DE-STRIDES ARCOLAB LIMITED-2020SP012035

PATIENT
  Age: 14 Year
  Sex: Male

DRUGS (7)
  1. VINCRISTINE [Concomitant]
     Active Substance: VINCRISTINE
     Indication: T-CELL TYPE ACUTE LEUKAEMIA
     Dosage: 2 MG PER CYCLE ON DAYS 8, 15, 22 AND 29, AS PER AIEOP-BFM ALL 2017 STUDY PROTOCOL
     Route: 065
  2. CYCLOPHOSPHAMIDE. [Concomitant]
     Active Substance: CYCLOPHOSPHAMIDE
     Indication: T-CELL TYPE ACUTE LEUKAEMIA
     Dosage: 1000 MG/M2 PER CYCLE CYCLOPHOSPHAMIDE ON DAY 2 OF INDUCTION TREATMENT AS PER AIEOP-BFM ALL 2017 STUD
     Route: 065
  3. PREDNISOLONE. [Suspect]
     Active Substance: PREDNISOLONE
     Indication: T-CELL TYPE ACUTE LEUKAEMIA
     Dosage: 60 MILLIGRAM/SQ. METER PER CYCLE AS PER AIEOP-BFM ALL 2017 STUDY PROTOCOL
     Route: 065
  4. PEGASPARGASE [Suspect]
     Active Substance: PEGASPARGASE
     Indication: T-CELL TYPE ACUTE LEUKAEMIA
     Dosage: 2500 UNITS/M2 ON DAYS 12 AND 26, CYCLICAL; AS PER AIEOP-BFM ALL 2017 STUDY PROTOCOL
     Route: 065
  5. DOXORUBICIN [Concomitant]
     Active Substance: DOXORUBICIN
     Indication: T-CELL TYPE ACUTE LEUKAEMIA
     Dosage: 30 MG/M2 ON DAYS 8, 15, 22 AND 29; CYCLICAL; AS PER AIEOP-BFM ALL 2017 STUDY PROTOCOL
     Route: 065
  6. PREDNISOLONE. [Suspect]
     Active Substance: PREDNISOLONE
     Dosage: CYCLICAL (TAPERING ON DAYS 29 TO 37); AS PER AIEOP-BFM ALL 2017 STUDY PROTOCOL
     Route: 065
  7. METHOTREXATE. [Concomitant]
     Active Substance: METHOTREXATE
     Indication: T-CELL TYPE ACUTE LEUKAEMIA
     Dosage: 12 MG PER CYCLE  ON DAYS 1, 12 AND 33, CYCLICAL; AS PER AIEOP-BFM ALL 2017 STUDY PROTOCOL
     Route: 037

REACTIONS (12)
  - Acute abdomen [Unknown]
  - Hyponatraemia [Recovered/Resolved]
  - Pancreatitis [Unknown]
  - Hypertriglyceridaemia [Recovered/Resolved]
  - Abdominal pain [Unknown]
  - Lethargy [Unknown]
  - Inappropriate antidiuretic hormone secretion [Unknown]
  - Volvulus [Recovered/Resolved]
  - Intestinal malrotation [Unknown]
  - Abdominal pain upper [Unknown]
  - Pallor [Unknown]
  - Vomiting [Unknown]
